FAERS Safety Report 8346777-4 (Version None)
Quarter: 2012Q2

REPORT INFORMATION
  Report Type: 
  Country: None (occurrence: None)
  Receive Date: 20120507
  Receipt Date: 20120507
  Transmission Date: 20120825
  Serious: No
  Sender: FDA-Public Use
  Company Number: None

PATIENT
  Age: 4 Year
  Sex: Male
  Weight: 19.0511 kg

DRUGS (1)
  1. NAPROXEN (ALEVE) [Suspect]
     Dosage: 1 CC

REACTIONS (4)
  - IRRITABILITY [None]
  - CRYING [None]
  - THINKING ABNORMAL [None]
  - PRODUCT FORMULATION ISSUE [None]
